FAERS Safety Report 23128194 (Version 3)
Quarter: 2024Q3

REPORT INFORMATION
  Report Type: Spontaneous
  Country: ES (occurrence: ES)
  Receive Date: 20231031
  Receipt Date: 20240719
  Transmission Date: 20241017
  Serious: Yes (Hospitalization, Other)
  Sender: GLAXOSMITHKLINE
  Company Number: ES-GLAXOSMITHKLINE-ES2023EME148822

PATIENT

DRUGS (17)
  1. JEMPERLI [Suspect]
     Active Substance: DOSTARLIMAB-GXLY
     Indication: Endometrial cancer
     Dosage: UNK (FIRST 4 CYCLES 500 MG/3 WEEKS AND FROM CYCLE 5 ONWARDS 1000 MG/6 WEEKS)
     Dates: start: 20230914
  2. FOLIC ACID [Concomitant]
     Active Substance: FOLIC ACID
     Indication: Product used for unknown indication
     Dosage: UNK
  3. ARIPIPRAZOLE [Concomitant]
     Active Substance: ARIPIPRAZOLE
     Indication: Product used for unknown indication
     Dosage: 15 MG
  4. BEMIPARIN [Concomitant]
     Active Substance: BEMIPARIN
     Indication: Product used for unknown indication
     Dosage: 3500 IU
  5. CLOTRIMAZOLE [Concomitant]
     Active Substance: CLOTRIMAZOLE
     Indication: Product used for unknown indication
     Dosage: UNK, POWDER
  6. DEXCHLORPHENIRAMINE [Concomitant]
     Active Substance: DEXCHLORPHENIRAMINE
     Indication: Pruritus
     Dosage: 5 MG
  7. EBASTINE [Concomitant]
     Active Substance: EBASTINE
     Indication: Pruritus
     Dosage: 10 MG
  8. FENTANYL [Concomitant]
     Active Substance: FENTANYL\FENTANYL CITRATE
     Indication: Pruritus
     Dosage: 133 UG SL IF NEEDED
  9. FENTANYL [Concomitant]
     Active Substance: FENTANYL\FENTANYL CITRATE
     Dosage: UNK, PATCH
  10. LORAZEPAM [Concomitant]
     Active Substance: LORAZEPAM
     Indication: Product used for unknown indication
     Dosage: 1 MG
  11. METAMIZOLE [Concomitant]
     Active Substance: METAMIZOLE
     Indication: Product used for unknown indication
     Dosage: 575 MG
  12. OMEPRAZOLE [Concomitant]
     Active Substance: OMEPRAZOLE
     Indication: Product used for unknown indication
     Dosage: UNK
  13. PALIPERIDONE [Concomitant]
     Active Substance: PALIPERIDONE
     Indication: Product used for unknown indication
     Dosage: 9 MG
  14. QUETIAPINE [Concomitant]
     Active Substance: QUETIAPINE
     Indication: Mental disorder
     Dosage: 200 MG
     Dates: start: 2016
  15. ACETAMINOPHEN [Concomitant]
     Active Substance: ACETAMINOPHEN
     Indication: Product used for unknown indication
     Dosage: 1 G
  16. LACTULOSE [Concomitant]
     Active Substance: LACTULOSE
     Indication: Product used for unknown indication
     Dosage: UNK
  17. Micralax [Concomitant]
     Indication: Product used for unknown indication
     Dosage: UNK

REACTIONS (16)
  - Stevens-Johnson syndrome [Recovering/Resolving]
  - Erythema multiforme [Unknown]
  - Toxic skin eruption [Unknown]
  - Skin reaction [Recovered/Resolved]
  - Rash [Recovered/Resolved]
  - Pruritus [Recovered/Resolved]
  - Rash morbilliform [Recovered/Resolved]
  - Pustule [Recovered/Resolved]
  - Blister [Recovered/Resolved]
  - Skin lesion [Recovered/Resolved]
  - Dry skin [Not Recovered/Not Resolved]
  - Anaemia [Unknown]
  - Folate deficiency [Unknown]
  - Vitamin B12 deficiency [Unknown]
  - Pyrexia [Unknown]
  - Malaise [Unknown]
